FAERS Safety Report 25298916 (Version 2)
Quarter: 2025Q2

REPORT INFORMATION
  Report Type: Report from Study
  Country: US (occurrence: US)
  Receive Date: 20250512
  Receipt Date: 20250523
  Transmission Date: 20250716
  Serious: No
  Sender: ACADIA PHARMACEUTICALS
  Company Number: US-ACADIA PHARMACEUTICALS INC.-ACA-2025-TRF-005338

PATIENT
  Sex: Female
  Weight: 37.5 kg

DRUGS (6)
  1. DAYBUE [Suspect]
     Active Substance: TROFINETIDE
     Indication: Rett syndrome
     Dosage: 40 MILLILITER, BID
     Dates: start: 20230602
  2. EPIDIOLEX [Concomitant]
     Active Substance: CANNABIDIOL
  3. TOPAMAX [Concomitant]
     Active Substance: TOPIRAMATE
  4. TRAZODONE [Concomitant]
     Active Substance: TRAZODONE HYDROCHLORIDE
  5. LORAZEPAM [Concomitant]
     Active Substance: LORAZEPAM
  6. DIASTAT [Concomitant]
     Active Substance: DIAZEPAM

REACTIONS (3)
  - Rash erythematous [Recovering/Resolving]
  - Diarrhoea [Recovered/Resolved]
  - Underdose [Unknown]
